FAERS Safety Report 9184966 (Version 1)
Quarter: 2013Q1

REPORT INFORMATION
  Report Type: Spontaneous
  Country: FR (occurrence: FR)
  Receive Date: 20130325
  Receipt Date: 20130325
  Transmission Date: 20140127
  Serious: Yes (Hospitalization)
  Sender: FDA-Public Use
  Company Number: FR-ROCHE-1204964

PATIENT
  Age: 81 Year
  Sex: Female

DRUGS (9)
  1. LUCENTIS [Suspect]
     Indication: AGE-RELATED MACULAR DEGENERATION
     Route: 050
     Dates: start: 20121010
  2. METHOTREXATE [Concomitant]
  3. VICTOZA [Concomitant]
  4. NOVONORM [Concomitant]
  5. GLUCOPHAGE [Concomitant]
  6. COTAREG [Concomitant]
  7. PARIET [Concomitant]
  8. SOTALOL [Concomitant]
  9. TAHOR [Concomitant]

REACTIONS (1)
  - Haemorrhagic stroke [Recovered/Resolved with Sequelae]
